FAERS Safety Report 5794637-5 (Version None)
Quarter: 2008Q2

REPORT INFORMATION
  Report Type: 
  Country: None (occurrence: None)
  Receive Date: 20080627
  Receipt Date: 20080627
  Transmission Date: 20081010
  Serious: Yes (Hospitalization)
  Sender: FDA-Public Use
  Company Number: None

PATIENT
  Sex: Male
  Weight: 77.1115 kg

DRUGS (14)
  1. NIFEDIAC CC [Suspect]
     Indication: HYPERTENSION
     Dosage: PO  PRIOR TO ADMISSION
     Route: 048
  2. SENISPAR [Suspect]
  3. DOXAZOSIN MESYLATE [Suspect]
  4. DIOVAN [Suspect]
  5. IMDUR [Suspect]
  6. LOPRESSOR [Suspect]
  7. ENALAPRIL MALEATE [Suspect]
  8. TERAZOSIN HCL [Suspect]
  9. CLONIDINE [Suspect]
  10. CENTRUM [Concomitant]
  11. PROTONIX [Concomitant]
  12. GLIPIZIDE [Concomitant]
  13. PHOSLO [Concomitant]
  14. ASPIRIN [Concomitant]

REACTIONS (5)
  - ATRIOVENTRICULAR BLOCK FIRST DEGREE [None]
  - BRADYCARDIA [None]
  - BUNDLE BRANCH BLOCK LEFT [None]
  - BUNDLE BRANCH BLOCK RIGHT [None]
  - HYPOTENSION [None]
